FAERS Safety Report 24944842 (Version 2)
Quarter: 2025Q2

REPORT INFORMATION
  Report Type: Spontaneous
  Country: US (occurrence: US)
  Receive Date: 20250208
  Receipt Date: 20250415
  Transmission Date: 20250717
  Serious: No
  Sender: SANOFI AVENTIS
  Company Number: US-SA-2025SA037896

PATIENT
  Age: 42 Year
  Sex: Male

DRUGS (1)
  1. DUPIXENT [Suspect]
     Active Substance: DUPILUMAB
     Dosage: 300 MG, QOW
     Route: 058

REACTIONS (7)
  - Skin swelling [Unknown]
  - Dry skin [Unknown]
  - Injection site irritation [Unknown]
  - Pruritus [Unknown]
  - Erythema [Unknown]
  - Injection site erythema [Unknown]
  - Injection site swelling [Unknown]
